FAERS Safety Report 7568064-4 (Version None)
Quarter: 2011Q2

REPORT INFORMATION
  Report Type: 
  Country: None (occurrence: None)
  Receive Date: 20110623
  Receipt Date: 20110618
  Transmission Date: 20111010
  Serious: No
  Sender: FDA-Public Use
  Company Number: US-TEVA-287409USA

PATIENT
  Sex: Female

DRUGS (3)
  1. PLAN B ONE-STEP [Suspect]
     Dosage: 1.5 MILLIGRAM;
     Route: 048
     Dates: start: 20110101, end: 20110101
  2. PLAN B ONE-STEP [Suspect]
     Indication: POST COITAL CONTRACEPTION
     Dosage: 1.5 MILLIGRAM;
     Route: 048
     Dates: start: 20100901, end: 20100901
  3. PLAN B ONE-STEP [Suspect]
     Dosage: 1.5 MILLIGRAM;
     Route: 048
     Dates: start: 20101101, end: 20101101

REACTIONS (1)
  - FUNGAL INFECTION [None]
